FAERS Safety Report 8721652 (Version 2)
Quarter: 2012Q4

REPORT INFORMATION
  Report Type: 
  Country: US (occurrence: US)
  Receive Date: 20120814
  Receipt Date: 20121227
  Transmission Date: 20130627
  Serious: Yes (Hospitalization)
  Sender: FDA-Public Use
  Company Number: US-BAYER-2012-080943

PATIENT
  Age: 43 Year
  Sex: Female
  Weight: 111.11 kg

DRUGS (7)
  1. YASMIN [Suspect]
     Indication: CONTRACEPTION
  2. LISINOPRIL [Concomitant]
     Indication: BLOOD PRESSURE HIGH
     Dosage: UNK
     Dates: start: 1994
  3. ZESTORETIC [Concomitant]
  4. ZYRTEC [Concomitant]
     Dosage: 10 mg tablet every day
  5. PREDNISONE [Concomitant]
     Dosage: 20 mg, 3 tablets every day for 4 days
  6. TYLENOL EXTRA STRENGTH [Concomitant]
     Indication: PAIN
  7. KCL [Concomitant]

REACTIONS (8)
  - Pulmonary embolism [None]
  - Lung infiltration [None]
  - Injury [None]
  - Pain [None]
  - General physical health deterioration [None]
  - Anxiety [None]
  - Emotional distress [None]
  - Pain [None]
